FAERS Safety Report 20594117 (Version 5)
Quarter: 2022Q2

REPORT INFORMATION
  Report Type: Report from Study
  Country: US (occurrence: US)
  Receive Date: 20220315
  Receipt Date: 20220608
  Transmission Date: 20220721
  Serious: No
  Sender: FDA-Public Use
  Company Number: US-NOVARTISTESTPH-NVSC2022US059335

PATIENT
  Sex: Female

DRUGS (2)
  1. PIQRAY [Suspect]
     Active Substance: ALPELISIB
     Indication: Breast cancer
     Dosage: 300 MG, QD
     Route: 048
     Dates: start: 202202
  2. FULVESTRANT [Suspect]
     Active Substance: FULVESTRANT
     Indication: Product used for unknown indication
     Dosage: UNK
     Route: 065

REACTIONS (9)
  - White blood cell count decreased [Unknown]
  - Eosinophil count increased [Unknown]
  - Tumour marker decreased [Unknown]
  - Inflammation [Unknown]
  - Dyspepsia [Unknown]
  - Hyperglycaemia [Unknown]
  - Pruritus [Unknown]
  - Muscle spasms [Unknown]
  - Fatigue [Unknown]
